FAERS Safety Report 5821733-6 (Version None)
Quarter: 2008Q3

REPORT INFORMATION
  Report Type: 
  Country: None (occurrence: None)
  Receive Date: 20080724
  Receipt Date: 20080714
  Transmission Date: 20090109
  Serious: Yes (Hospitalization, Other)
  Sender: FDA-Public Use
  Company Number: US-PFIZER INC-2008029961

PATIENT
  Sex: Male

DRUGS (2)
  1. CELEBREX [Suspect]
     Indication: PAIN MANAGEMENT
     Dates: start: 20071106, end: 20071203
  2. CELEBREX [Suspect]
     Indication: RADICULAR PAIN

REACTIONS (2)
  - LACUNAR INFARCTION [None]
  - MYOCARDIAL INFARCTION [None]
